FAERS Safety Report 8880955 (Version 1)
Quarter: 2012Q4

REPORT INFORMATION
  Report Type: 
  Country: FR (occurrence: FR)
  Receive Date: 20121101
  Receipt Date: 20121101
  Transmission Date: 20130627
  Serious: Yes (Life-Threatening, Hospitalization)
  Sender: FDA-Public Use
  Company Number: FR-PFIZER INC-2012269313

PATIENT
  Age: 34 Year
  Sex: Female

DRUGS (4)
  1. CORDARONE [Suspect]
     Indication: PAROXYSMAL ATRIAL FIBRILLATION
     Dosage: 1200 mg, single
     Route: 048
     Dates: start: 20120920, end: 20120920
  2. CORDARONE [Interacting]
     Dosage: 200 mg, daily
     Route: 048
     Dates: start: 20120923, end: 20121009
  3. XARELTO [Interacting]
     Indication: PAROXYSMAL ATRIAL FIBRILLATION
     Dosage: 20 mg, daily
     Route: 048
     Dates: start: 20120923, end: 20121009
  4. ORELOX [Concomitant]
     Dosage: UNK
     Dates: start: 201209, end: 201209

REACTIONS (3)
  - Drug interaction [Recovered/Resolved]
  - Gastrointestinal haemorrhage [Recovered/Resolved]
  - Gingival bleeding [Recovered/Resolved]
